FAERS Safety Report 7189389-0 (Version None)
Quarter: 2010Q4

REPORT INFORMATION
  Report Type: 
  Country: None (occurrence: None)
  Receive Date: 20101222
  Receipt Date: 20100916
  Transmission Date: 20110411
  Serious: No
  Sender: FDA-Public Use
  Company Number: US-AMGEN-TCS424718

PATIENT

DRUGS (1)
  1. ENBREL [Suspect]
     Indication: RHEUMATOID ARTHRITIS
     Dosage: 50 MG, QWK
     Route: 058
     Dates: start: 20100114

REACTIONS (15)
  - ARTHRALGIA [None]
  - EXPOSURE TO TOXIC AGENT [None]
  - FALL [None]
  - FATIGUE [None]
  - HYPERSENSITIVITY [None]
  - JOINT EFFUSION [None]
  - JOINT SWELLING [None]
  - MENISCUS LESION [None]
  - RESPIRATORY TRACT CONGESTION [None]
  - SCIATICA [None]
  - SINUS HEADACHE [None]
  - SINUSITIS [None]
  - TOOTH FRACTURE [None]
  - UPPER RESPIRATORY TRACT INFECTION [None]
  - WHEEZING [None]
